FAERS Safety Report 9345331 (Version 2)
Quarter: 2013Q3

REPORT INFORMATION
  Report Type: Spontaneous
  Country: FR (occurrence: FR)
  Receive Date: 20130613
  Receipt Date: 20130730
  Transmission Date: 20140515
  Serious: Yes (Hospitalization, Other)
  Sender: FDA-Public Use
  Company Number: FR-B.I. PHARMACEUTICALS,INC./RIDGEFIELD-2013-FF-01645FF

PATIENT
  Age: 64 Year
  Sex: Female
  Weight: 80 kg

DRUGS (6)
  1. PRADAXA [Suspect]
     Dosage: 300 MG
     Route: 048
     Dates: start: 20130208
  2. ATENOLOL [Concomitant]
     Dosage: 100 MG
  3. TAHOR [Concomitant]
  4. ATACAND [Concomitant]
  5. STAGID [Concomitant]
  6. CORDARONE [Concomitant]

REACTIONS (3)
  - Ischaemic stroke [Unknown]
  - Sinus bradycardia [Unknown]
  - Renal failure acute [Unknown]
